FAERS Safety Report 15813454 (Version 1)
Quarter: 2018Q4

REPORT INFORMATION
  Report Type: Spontaneous
  Country: US (occurrence: US)
  Receive Date: 20181217
  Receipt Date: 20181217
  Transmission Date: 20190205
  Serious: No
  Sender: FDA-Public Use
  Company Number: None

PATIENT
  Age: 46 Year
  Sex: Male

DRUGS (1)
  1. COPAXONE [Suspect]
     Active Substance: GLATIRAMER ACETATE
     Dosage: OTHER
     Route: 058
     Dates: start: 201709

REACTIONS (4)
  - Nasal congestion [None]
  - Rash [None]
  - Urticaria [None]
  - Mouth swelling [None]

NARRATIVE: CASE EVENT DATE: 20181006
